FAERS Safety Report 9360901 (Version 1)
Quarter: 2013Q2

REPORT INFORMATION
  Report Type: Report from Study
  Country: CO (occurrence: CO)
  Receive Date: 20130621
  Receipt Date: 20130621
  Transmission Date: 20140414
  Serious: Yes (Death)
  Sender: FDA-Public Use
  Company Number: CO-SANOFI-AVENTIS-2013SA061302

PATIENT
  Age: 71 Year
  Sex: Female

DRUGS (9)
  1. LANTUS [Suspect]
     Indication: DIABETES MELLITUS
     Dosage: DOSE:10 UNIT(S)
     Route: 058
     Dates: start: 201201, end: 20130502
  2. APIDRA [Suspect]
     Indication: DIABETES MELLITUS
     Dosage: DOSE:4 UNIT(S)
     Route: 058
     Dates: start: 201201, end: 20130502
  3. PROPRANOLOL [Suspect]
     Indication: PRODUCT USED FOR UNKNOWN INDICATION
     Route: 048
     Dates: end: 20130502
  4. NIFEDIPINE [Suspect]
     Indication: HYPERTENSION
     Route: 048
     Dates: end: 20130502
  5. FUROSEMIDE [Suspect]
     Indication: PRODUCT USED FOR UNKNOWN INDICATION
     Route: 048
     Dates: end: 20130502
  6. METOCLOPRAMIDE [Suspect]
     Indication: PRODUCT USED FOR UNKNOWN INDICATION
     Route: 048
     Dates: end: 20130502
  7. OMEPRAZOLE [Concomitant]
     Route: 048
     Dates: end: 20130502
  8. LEVOTHYROXINE [Concomitant]
     Indication: HYPOTHYROIDISM
     Dates: end: 20130502
  9. BUSCAPINA [Concomitant]
     Route: 048
     Dates: end: 20130502

REACTIONS (2)
  - Nephropathy [Fatal]
  - Pulmonary oedema [Fatal]
